FAERS Safety Report 8313450-8 (Version None)
Quarter: 2012Q2

REPORT INFORMATION
  Report Type: 
  Country: None (occurrence: None)
  Receive Date: 20120426
  Receipt Date: 20120423
  Transmission Date: 20120825
  Serious: Yes (Death, Other)
  Sender: FDA-Public Use
  Company Number: PHHY2012PE032502

PATIENT
  Sex: Female

DRUGS (2)
  1. DIOVAN [Suspect]
     Indication: HYPERTENSION
     Dosage: 80 MG, BID
  2. DIOVAN [Suspect]
     Dosage: 80 MG, DAILY
     Dates: start: 20111011

REACTIONS (5)
  - ARTHRITIS [None]
  - PULMONARY EMBOLISM [None]
  - CARDIOVASCULAR DISORDER [None]
  - DIZZINESS [None]
  - PULMONARY FIBROSIS [None]
